FAERS Safety Report 5935701-7 (Version None)
Quarter: 2008Q4

REPORT INFORMATION
  Report Type: 
  Country: None (occurrence: None)
  Receive Date: 20081029
  Receipt Date: 20081029
  Transmission Date: 20090506
  Serious: Yes (Hospitalization)
  Sender: FDA-Public Use
  Company Number: None

PATIENT
  Age: 73 Year
  Sex: Female
  Weight: 56 kg

DRUGS (2)
  1. ERLOTINIB 150MG GENETECH [Suspect]
     Indication: NON-SMALL CELL LUNG CANCER
     Dosage: 150MG, ORALLY QD
     Route: 048
     Dates: start: 20080916
  2. DASATINIB 140MG BRISTOL-MEYERS SQUIBB [Suspect]
     Indication: NON-SMALL CELL LUNG CANCER
     Dosage: 140MG, ORALLY QD
     Route: 048
     Dates: start: 20080924

REACTIONS (2)
  - MALIGNANT PLEURAL EFFUSION [None]
  - PAIN [None]
